FAERS Safety Report 18415411 (Version 2)
Quarter: 2020Q4

REPORT INFORMATION
  Report Type: Spontaneous
  Country: PT (occurrence: PT)
  Receive Date: 20201022
  Receipt Date: 20201102
  Transmission Date: 20210114
  Serious: Yes (Other)
  Sender: FDA-Public Use
  Company Number: PT-AUROBINDO-AUR-APL-2020-052990

PATIENT
  Age: 62 Year
  Sex: Female

DRUGS (11)
  1. CEFAZOLIN [Suspect]
     Active Substance: CEFAZOLIN
     Indication: GENERAL ANAESTHESIA
     Dosage: UNK (SECOND EPISODE OF ANAESTHESIA)
     Route: 008
  2. DROPERIDOL. [Suspect]
     Active Substance: DROPERIDOL
     Indication: INDUCTION OF ANAESTHESIA
     Dosage: UNK
     Route: 008
  3. BUPIVACAINE. [Suspect]
     Active Substance: BUPIVACAINE
     Indication: INDUCTION OF ANAESTHESIA
     Dosage: UNK
     Route: 008
  4. ROCURONIUM [Suspect]
     Active Substance: ROCURONIUM BROMIDE
     Indication: GENERAL ANAESTHESIA
     Dosage: UNK 9SECOND EPISODE OF ANAESTHESIA)
     Route: 008
  5. CEFAZOLIN [Suspect]
     Active Substance: CEFAZOLIN
     Indication: INDUCTION OF ANAESTHESIA
     Dosage: UNK
     Route: 008
  6. MIDAZOLAM. [Suspect]
     Active Substance: MIDAZOLAM
     Dosage: 15 MILLIGRAM (SECOND EPISODE OF ANAESTHESIA)
     Route: 008
  7. PROPOFOL. [Suspect]
     Active Substance: PROPOFOL
     Indication: GENERAL ANAESTHESIA
     Dosage: UNK (SECOND EPISODE OF ANAESTHESIA)
     Route: 008
  8. SUFENTANIL [Suspect]
     Active Substance: SUFENTANIL
     Indication: INDUCTION OF ANAESTHESIA
     Dosage: UNK
     Route: 008
  9. MIDAZOLAM. [Suspect]
     Active Substance: MIDAZOLAM
     Indication: GENERAL ANAESTHESIA
     Dosage: 15 MG
  10. FENTANYL. [Suspect]
     Active Substance: FENTANYL
     Indication: GENERAL ANAESTHESIA
     Dosage: UNK (SECOND EPISODE OF ANAESTHESIA)
     Route: 008
  11. DEXAMETHASONE. [Suspect]
     Active Substance: DEXAMETHASONE
     Indication: GENERAL ANAESTHESIA
     Dosage: UNK (SECOND EPISODE OF ANAESTHESIA)
     Route: 008

REACTIONS (7)
  - Anaphylactic reaction [Recovered/Resolved]
  - Product use in unapproved indication [Recovered/Resolved]
  - Bradycardia [Recovered/Resolved]
  - Haemodynamic instability [Recovered/Resolved]
  - Cardiac arrest [Recovered/Resolved]
  - Hypoxia [Recovered/Resolved]
  - Altered state of consciousness [Recovered/Resolved]
